APPROVED DRUG PRODUCT: AMLODIPINE BESYLATE AND VALSARTAN
Active Ingredient: AMLODIPINE BESYLATE; VALSARTAN
Strength: EQ 5MG BASE;320MG
Dosage Form/Route: TABLET;ORAL
Application: A091235 | Product #003
Applicant: TEVA PHARMACEUTICALS USA
Approved: Mar 30, 2015 | RLD: No | RS: No | Type: DISCN